FAERS Safety Report 9249175 (Version 1)
Quarter: 2013Q2

REPORT INFORMATION
  Report Type: Report from Study
  Country: US (occurrence: US)
  Receive Date: 20130423
  Receipt Date: 20130423
  Transmission Date: 20140414
  Serious: Yes (Hospitalization)
  Sender: FDA-Public Use
  Company Number: US-ABBOTT-13P-163-1077136-00

PATIENT
  Sex: Female
  Weight: 144.37 kg

DRUGS (11)
  1. HUMIRA [Suspect]
     Indication: RHEUMATOID ARTHRITIS
     Dates: start: 2009, end: 2011
  2. HUMIRA [Suspect]
     Indication: PSORIATIC ARTHROPATHY
  3. HUMIRA [Suspect]
     Indication: OSTEOARTHRITIS
  4. PRAVASTATIN [Concomitant]
     Indication: HYPERLIPIDAEMIA
  5. CYMBALTA [Concomitant]
     Indication: DEPRESSION
  6. MOVE FREE [Concomitant]
     Indication: ARTHRITIS
  7. EVISTA [Concomitant]
     Indication: OSTEOPOROSIS
  8. OXYCODONE [Concomitant]
     Indication: PAIN
  9. EXFORGE [Concomitant]
     Indication: HYPERTENSION
  10. ASPIRIN [Concomitant]
     Indication: PRODUCT USED FOR UNKNOWN INDICATION
  11. POTASSIUM [Concomitant]
     Indication: BLOOD POTASSIUM DECREASED

REACTIONS (7)
  - Dizziness [Recovered/Resolved]
  - Loss of consciousness [Recovered/Resolved]
  - Colitis ischaemic [Recovered/Resolved]
  - Fall [Recovered/Resolved]
  - Foot fracture [Recovered/Resolved]
  - Rectal haemorrhage [Recovered/Resolved]
  - Nasopharyngitis [Not Recovered/Not Resolved]
